FAERS Safety Report 4718832-9 (Version None)
Quarter: 2005Q3

REPORT INFORMATION
  Report Type: 
  Country: None (occurrence: None)
  Receive Date: 20050719
  Receipt Date: 20050708
  Transmission Date: 20060218
  Serious: Yes (Hospitalization)
  Sender: FDA-Public Use
  Company Number: KII-2005-0017462

PATIENT
  Age: 55 Year
  Sex: Male

DRUGS (1)
  1. MORPHINE SULFATE [Suspect]
     Dosage: 180 MG, ORAL
     Route: 048
     Dates: start: 20050608, end: 20050608

REACTIONS (6)
  - ACCIDENTAL EXPOSURE [None]
  - ACCIDENTAL OVERDOSE [None]
  - COORDINATION ABNORMAL [None]
  - MEDICATION ERROR [None]
  - SELF-MEDICATION [None]
  - SOMNOLENCE [None]
